FAERS Safety Report 9954703 (Version 1)
Quarter: 2014Q1

REPORT INFORMATION
  Report Type: Spontaneous
  Country: US (occurrence: US)
  Receive Date: 20140304
  Receipt Date: 20140304
  Transmission Date: 20141002
  Serious: No
  Sender: FDA-Public Use
  Company Number: US-ABBVIE-13P-163-1083663-00

PATIENT
  Sex: 0

DRUGS (2)
  1. HUMIRA [Suspect]
     Indication: PRODUCT USED FOR UNKNOWN INDICATION
  2. METHOTREXATE [Suspect]
     Indication: PRODUCT USED FOR UNKNOWN INDICATION

REACTIONS (12)
  - Henoch-Schonlein purpura [Unknown]
  - Back pain [Unknown]
  - Psoriatic arthropathy [Unknown]
  - Confusional state [Unknown]
  - Dizziness [Unknown]
  - Nausea [Unknown]
  - Malaise [Unknown]
  - Feeling hot [Unknown]
  - Swelling [Unknown]
  - Formication [Unknown]
  - Pain [Unknown]
  - Feeling abnormal [Unknown]
